FAERS Safety Report 7259146-5 (Version None)
Quarter: 2011Q1

REPORT INFORMATION
  Report Type: 
  Country: None (occurrence: None)
  Receive Date: 20110129
  Receipt Date: 20100624
  Transmission Date: 20110831
  Serious: No
  Sender: FDA-Public Use
  Company Number: US-ABBOTT-10P-163-0653400-00

PATIENT
  Age: 29 Year
  Sex: Female

DRUGS (4)
  1. EFFEXOR [Concomitant]
     Indication: DEPRESSION
  2. METHOTREXATE [Concomitant]
     Indication: PSORIATIC ARTHROPATHY
  3. ADDERALL 10 [Concomitant]
     Indication: DEPRESSION
  4. HUMIRA [Suspect]
     Indication: PRODUCT USED FOR UNKNOWN INDICATION
     Dates: start: 20100301

REACTIONS (1)
  - INJECTION SITE PAIN [None]
